FAERS Safety Report 8898531 (Version 1)
Quarter: 2012Q4

REPORT INFORMATION
  Report Type: 
  Country: JP (occurrence: JP)
  Receive Date: 20121109
  Receipt Date: 20121109
  Transmission Date: 20130627
  Serious: Yes (Death)
  Sender: FDA-Public Use
  Company Number: JP-NAPPMUNDI-GBR-2012-0012040

PATIENT
  Age: 56 Year
  Sex: Male

DRUGS (1)
  1. OXYCODONE HYDROCHLORIDE [Suspect]
     Indication: CANCER PAIN
     Dosage: 100 mg, daily
     Route: 058
     Dates: start: 20121015

REACTIONS (1)
  - Malignant neoplasm progression [Fatal]
